FAERS Safety Report 5171941-5 (Version None)
Quarter: 2006Q4

REPORT INFORMATION
  Report Type: 
  Country: None (occurrence: None)
  Receive Date: 20061205
  Receipt Date: 20061120
  Transmission Date: 20070319
  Serious: Yes (Other)
  Sender: FDA-Public Use
  Company Number: 2006145404

PATIENT
  Sex: Female

DRUGS (1)
  1. BEN-GAY ULTRA (MENTHOL, CAMPHOR, METHYL SALICYLATE) [Suspect]
     Dosage: TOPICAL
     Route: 061

REACTIONS (6)
  - ABASIA [None]
  - APPLICATION SITE BURN [None]
  - APPLICATION SITE ERYTHEMA [None]
  - APPLICATION SITE VESICLES [None]
  - BLISTER INFECTED [None]
  - PRURITUS [None]
